FAERS Safety Report 14919376 (Version 4)
Quarter: 2018Q3

REPORT INFORMATION
  Report Type: Spontaneous
  Country: GB (occurrence: GB)
  Receive Date: 20180521
  Receipt Date: 20180706
  Transmission Date: 20181010
  Serious: Yes (Life-Threatening)
  Sender: FDA-Public Use
  Company Number: GB-PFIZER INC-2018203076

PATIENT
  Age: 76 Year
  Sex: Male

DRUGS (5)
  1. CYCLOPHOSPHAMIDE. [Concomitant]
     Active Substance: CYCLOPHOSPHAMIDE
     Indication: DIFFUSE LARGE B-CELL LYMPHOMA STAGE III
     Dosage: UNK, CYCLIC (3 CYCLES)
  2. DOXORUBICIN [Concomitant]
     Active Substance: DOXORUBICIN
     Indication: DIFFUSE LARGE B-CELL LYMPHOMA STAGE III
     Dosage: UNK, CYCLIC (3 CYCLES)
  3. RITUXIMAB. [Concomitant]
     Active Substance: RITUXIMAB
     Indication: DIFFUSE LARGE B-CELL LYMPHOMA STAGE III
     Dosage: UNK, CYCLIC (3 CYCLES)
  4. PREDNISONE. [Concomitant]
     Active Substance: PREDNISONE
     Indication: DIFFUSE LARGE B-CELL LYMPHOMA STAGE III
     Dosage: UNK, CYCLIC (3 CYCLES)
  5. VINCRISTINE SULFATE. [Suspect]
     Active Substance: VINCRISTINE SULFATE
     Indication: DIFFUSE LARGE B-CELL LYMPHOMA STAGE III
     Dosage: UNK, CYCLIC (3 CYCLES)

REACTIONS (2)
  - Vocal cord paralysis [Recovering/Resolving]
  - Neurotoxicity [Recovering/Resolving]
